FAERS Safety Report 5015403-4 (Version None)
Quarter: 2006Q2

REPORT INFORMATION
  Report Type: 
  Country: None (occurrence: None)
  Receive Date: 20060530
  Receipt Date: 20060530
  Transmission Date: 20061013
  Serious: Yes (Other)
  Sender: FDA-Public Use
  Company Number: None

PATIENT
  Age: 70 Year
  Sex: Male
  Weight: 90.9 kg

DRUGS (6)
  1. OLANZAPINE [Suspect]
  2. CLINDAMYCIN PHOSPHATE [Concomitant]
  3. ZOLPIDEM TARTRATE [Concomitant]
  4. . [Concomitant]
  5. CAMPHOR 0.5 /MENTHOL [Concomitant]
  6. PERMETHRIN [Concomitant]

REACTIONS (1)
  - MUSCLE SPASTICITY [None]
